FAERS Safety Report 12225459 (Version 1)
Quarter: 2016Q1

REPORT INFORMATION
  Report Type: Spontaneous
  Country: US (occurrence: None)
  Receive Date: 20160330
  Receipt Date: 20160330
  Transmission Date: 20160526
  Serious: No
  Sender: FDA-Public Use
  Company Number: None

PATIENT
  Sex: Male

DRUGS (1)
  1. SILDENAFIL 20MG GREENSTONE [Suspect]
     Active Substance: SILDENAFIL
     Indication: PULMONARY HYPERTENSION
     Dosage: LAST SHIIPMENT
     Route: 048
     Dates: start: 20151029, end: 20160302

REACTIONS (3)
  - Product physical issue [None]
  - Wrong drug administered [None]
  - Incorrect dose administered [None]
